FAERS Safety Report 16762314 (Version 1)
Quarter: 2019Q3

REPORT INFORMATION
  Report Type: Spontaneous
  Country: BR (occurrence: BR)
  Receive Date: 20190831
  Receipt Date: 20190831
  Transmission Date: 20191005
  Serious: Yes (Hospitalization, Other)
  Sender: FDA-Public Use
  Company Number: BR-BRISTOL-MYERS SQUIBB COMPANY-BMS-2019-084780

PATIENT
  Age: 55 Year
  Sex: Male

DRUGS (1)
  1. NIVOLUMAB [Suspect]
     Active Substance: NIVOLUMAB
     Indication: ACRAL LENTIGINOUS MELANOMA
     Dosage: 3 MILLIGRAM/KILOGRAM, Q2WK
     Route: 065
     Dates: start: 201601

REACTIONS (6)
  - Malignant neoplasm progression [Unknown]
  - Secondary hypogonadism [Unknown]
  - Psoriasis [Unknown]
  - Vitiligo [Recovering/Resolving]
  - Secondary adrenocortical insufficiency [Unknown]
  - Primary hypothyroidism [Unknown]

NARRATIVE: CASE EVENT DATE: 201906
